FAERS Safety Report 13968301 (Version 1)
Quarter: 2017Q3

REPORT INFORMATION
  Report Type: Spontaneous
  Country: US (occurrence: US)
  Receive Date: 20170914
  Receipt Date: 20170914
  Transmission Date: 20171128
  Serious: No
  Sender: FDA-Public Use
  Company Number: US-PERRIGO-17US000701

PATIENT
  Age: 75 Year
  Sex: Female
  Weight: 58.96 kg

DRUGS (3)
  1. MINOXIDIL. [Suspect]
     Active Substance: MINOXIDIL
     Indication: ALOPECIA
     Dosage: SMALL AMOUNT TO EYEBROWS, BID
     Route: 061
     Dates: start: 201611
  2. VITAMINS NOS [Concomitant]
     Active Substance: VITAMINS
     Indication: SUPPLEMENTATION THERAPY
     Dosage: UNK
     Route: 065
     Dates: start: 2015
  3. MINOXIDIL. [Suspect]
     Active Substance: MINOXIDIL
     Dosage: MORE THAN 1 ML ALL OVER SCALP, TWICE DAILY
     Route: 061
     Dates: start: 20170106

REACTIONS (2)
  - Drug administered at inappropriate site [Unknown]
  - Incorrect dose administered [Unknown]

NARRATIVE: CASE EVENT DATE: 201611
